FAERS Safety Report 21773294 (Version 3)
Quarter: 2023Q2

REPORT INFORMATION
  Report Type: Spontaneous
  Country: FR (occurrence: FR)
  Receive Date: 20221223
  Receipt Date: 20230416
  Transmission Date: 20230722
  Serious: Yes (Other)
  Sender: FDA-Public Use
  Company Number: FR-JNJFOC-20221251763

PATIENT
  Age: 67 Year
  Sex: Female
  Weight: 66 kg

DRUGS (4)
  1. YONDELIS [Suspect]
     Active Substance: TRABECTEDIN
     Indication: Liposarcoma recurrent
     Route: 042
     Dates: start: 20221010, end: 20221010
  2. TRAMADOL [Concomitant]
     Active Substance: TRAMADOL
     Indication: Neuralgia
  3. METOCLOPRAMIDE [Concomitant]
     Active Substance: METOCLOPRAMIDE
     Indication: Product used for unknown indication
  4. EFFERALGAN [Concomitant]
     Active Substance: ACETAMINOPHEN
     Indication: Neuralgia

REACTIONS (1)
  - Mixed liver injury [Recovering/Resolving]

NARRATIVE: CASE EVENT DATE: 20221012
